FAERS Safety Report 5625632-4 (Version None)
Quarter: 2008Q1

REPORT INFORMATION
  Report Type: 
  Country: None (occurrence: None)
  Receive Date: 20080214
  Receipt Date: 20080206
  Transmission Date: 20080703
  Serious: Yes (Hospitalization, Other)
  Sender: FDA-Public Use
  Company Number: SE-BAYER-200812680GPV

PATIENT
  Age: 79 Year
  Sex: Female

DRUGS (6)
  1. CIPROXIN [Suspect]
     Indication: PYELONEPHRITIS
     Route: 065
     Dates: start: 20070915
  2. ZINACEF (CEFUROXIM) [Suspect]
     Indication: PYELONEPHRITIS
     Route: 065
     Dates: start: 20070913
  3. ACETAMINOPHEN [Concomitant]
     Indication: DRUG USE FOR UNKNOWN INDICATION
     Route: 065
  4. PREDNISOLONE [Concomitant]
     Indication: DRUG USE FOR UNKNOWN INDICATION
     Route: 065
  5. PEVARYL [Concomitant]
     Indication: DRUG USE FOR UNKNOWN INDICATION
     Route: 065
  6. ASPIRIN [Concomitant]
     Indication: DRUG USE FOR UNKNOWN INDICATION
     Route: 065

REACTIONS (3)
  - CEREBRAL INFARCTION [None]
  - CLOSTRIDIUM DIFFICILE COLITIS [None]
  - DIARRHOEA [None]
